FAERS Safety Report 21917278 (Version 4)
Quarter: 2023Q2

REPORT INFORMATION
  Report Type: Report from Study
  Country: US (occurrence: US)
  Receive Date: 20230126
  Receipt Date: 20230515
  Transmission Date: 20230722
  Serious: Yes (Hospitalization, Other)
  Sender: FDA-Public Use
  Company Number: US-TAKEDA-2023TUS009274

PATIENT
  Sex: Female
  Weight: 58 kg

DRUGS (35)
  1. HUMAN IMMUNOGLOBULIN G [Suspect]
     Active Substance: HUMAN IMMUNOGLOBULIN G
     Indication: Immunodeficiency
     Dosage: 35 GRAM, Q4WEEKS
     Route: 042
     Dates: start: 20230109
  2. DIPHENHYDRAMINE [Concomitant]
     Active Substance: DIPHENHYDRAMINE
  3. RANOLAZINE [Concomitant]
     Active Substance: RANOLAZINE
  4. ONDANSETRON HYDROCHLORIDE [Concomitant]
     Active Substance: ONDANSETRON HYDROCHLORIDE
  5. CYANOCOBALAMIN [Concomitant]
     Active Substance: CYANOCOBALAMIN
  6. ESTRADIOL [Concomitant]
     Active Substance: ESTRADIOL
  7. EPINEPHRINE [Concomitant]
     Active Substance: EPINEPHRINE
  8. SODIUM CHLORIDE [Concomitant]
     Active Substance: SODIUM CHLORIDE
  9. SYNTHROID [Concomitant]
     Active Substance: LEVOTHYROXINE SODIUM
  10. POTASSIUM CHLORIDE [Concomitant]
     Active Substance: POTASSIUM CHLORIDE
  11. RESTASIS [Concomitant]
     Active Substance: CYCLOSPORINE
  12. CALCIUM\CHOLECALCIFEROL [Concomitant]
     Active Substance: CALCIUM\CHOLECALCIFEROL
  13. HYDROCORTISONE [Concomitant]
     Active Substance: HYDROCORTISONE
  14. SOTALOL HYDROCHLORIDE [Concomitant]
     Active Substance: SOTALOL HYDROCHLORIDE
  15. ACETAMINOPHEN [Concomitant]
     Active Substance: ACETAMINOPHEN
  16. REPATHA [Concomitant]
     Active Substance: EVOLOCUMAB
  17. ALLOPURINOL [Concomitant]
     Active Substance: ALLOPURINOL
  18. HYDROCHLOROTHIAZIDE [Concomitant]
     Active Substance: HYDROCHLOROTHIAZIDE
  19. NEXIUM [Concomitant]
     Active Substance: ESOMEPRAZOLE MAGNESIUM
  20. NITROGLYCERIN [Concomitant]
     Active Substance: NITROGLYCERIN
  21. SOLIFENACIN SUCCINATE [Concomitant]
     Active Substance: SOLIFENACIN SUCCINATE
  22. ASPIRIN [Concomitant]
     Active Substance: ASPIRIN
  23. LASIX [Concomitant]
     Active Substance: FUROSEMIDE
  24. MAGNESIUM [Concomitant]
     Active Substance: MAGNESIUM
  25. BUPRENORPHINE [Concomitant]
     Active Substance: BUPRENORPHINE
  26. DIAZEPAM [Concomitant]
     Active Substance: DIAZEPAM
  27. TROSPIUM CHLORIDE [Concomitant]
     Active Substance: TROSPIUM CHLORIDE
  28. PRECOSE [Concomitant]
     Active Substance: ACARBOSE
  29. LIDOCAINE [Concomitant]
     Active Substance: LIDOCAINE
  30. XIFAXAN [Concomitant]
     Active Substance: RIFAXIMIN
  31. NEUPRO [Concomitant]
     Active Substance: ROTIGOTINE
  32. ATORVASTATIN CALCIUM [Concomitant]
     Active Substance: ATORVASTATIN CALCIUM
  33. OXYCODONE AND ACETAMINOPHEN [Concomitant]
     Active Substance: ACETAMINOPHEN\OXYCODONE HYDROCHLORIDE
     Dosage: UNK
  34. SOTALOL [Concomitant]
     Active Substance: SOTALOL
     Dosage: UNK
  35. TAMSULOSIN HYDROCHLORIDE [Concomitant]
     Active Substance: TAMSULOSIN HYDROCHLORIDE
     Dosage: UNK

REACTIONS (3)
  - Nephrolithiasis [Unknown]
  - Transient ischaemic attack [Unknown]
  - Product dose omission issue [Unknown]
